FAERS Safety Report 7325502-X (Version None)
Quarter: 2011Q1

REPORT INFORMATION
  Report Type: 
  Country: None (occurrence: None)
  Receive Date: 20110302
  Receipt Date: 20110221
  Transmission Date: 20110831
  Serious: Yes (Other)
  Sender: FDA-Public Use
  Company Number: NO-BAYER-2011-016476

PATIENT
  Sex: Female

DRUGS (1)
  1. MIRENA [Suspect]
     Indication: CONTRACEPTION
     Dosage: INTRAUTERINE DEVICE, CHANGED 2 TIMES
     Route: 067
     Dates: start: 19990317, end: 20100518

REACTIONS (2)
  - PANIC ATTACK [None]
  - DEPRESSION [None]
